FAERS Safety Report 14784808 (Version 1)
Quarter: 2018Q2

REPORT INFORMATION
  Report Type: Spontaneous
  Country: US (occurrence: US)
  Receive Date: 20180420
  Receipt Date: 20180420
  Transmission Date: 20180711
  Serious: No
  Sender: FDA-Public Use
  Company Number: US-B.I. PHARMACEUTICALS,INC./RIDGEFIELD-2018-BI-020804

PATIENT
  Sex: Male

DRUGS (1)
  1. SPIRIVA RESPIMAT [Suspect]
     Active Substance: TIOTROPIUM BROMIDE
     Indication: PRODUCT USED FOR UNKNOWN INDICATION
     Dosage: STRENGTH:1.25MCG;FORMULATION:INHALATION SPRAYADMINISTRATIONCORRECT? NR ACTION TAKEN : NOT REPORTED
     Route: 055

REACTIONS (2)
  - Wound haemorrhage [Unknown]
  - Dyspnoea [Unknown]
